FAERS Safety Report 14317816 (Version 1)
Quarter: 2017Q4

REPORT INFORMATION
  Report Type: Spontaneous
  Country: US (occurrence: US)
  Receive Date: 20171222
  Receipt Date: 20171222
  Transmission Date: 20180321
  Serious: Yes (Hospitalization, Other)
  Sender: FDA-Public Use
  Company Number: US-PURDUE-USA-2017-0142106

PATIENT
  Age: 51 Year
  Sex: Male

DRUGS (2)
  1. COLACE [Suspect]
     Active Substance: DOCUSATE SODIUM
     Indication: PRODUCT USED FOR UNKNOWN INDICATION
     Dosage: UNK
     Route: 048
     Dates: start: 20171208, end: 20171214
  2. COLACE [Suspect]
     Active Substance: DOCUSATE SODIUM
     Dosage: UNK
     Route: 048

REACTIONS (10)
  - Influenza like illness [Unknown]
  - Malaise [Not Recovered/Not Resolved]
  - Skin burning sensation [Unknown]
  - Feeling abnormal [Not Recovered/Not Resolved]
  - Knee operation [Unknown]
  - Body temperature fluctuation [Unknown]
  - Drug hypersensitivity [Not Recovered/Not Resolved]
  - Moaning [Not Recovered/Not Resolved]
  - Pain [Not Recovered/Not Resolved]
  - Paraesthesia [Unknown]

NARRATIVE: CASE EVENT DATE: 20171208
